FAERS Safety Report 8435385 (Version 2)
Quarter: 2014Q1

REPORT INFORMATION
  Report Type: Spontaneous
  Country: US (occurrence: US)
  Receive Date: 20120301
  Receipt Date: 20140113
  Transmission Date: 20141002
  Serious: Yes (Death, Hospitalization)
  Sender: FDA-Public Use
  Company Number: US-GLAXOSMITHKLINE-A0932449A

PATIENT
  Age: 70 Year
  Sex: Male

DRUGS (1)
  1. AVANDIA [Suspect]
     Indication: DIABETES MELLITUS
     Dosage: 4MG PER DAY
     Route: 048
     Dates: start: 2004, end: 2009

REACTIONS (10)
  - Cardiac failure congestive [Fatal]
  - Myocardial infarction [Unknown]
  - Aortic stenosis [Unknown]
  - Aortic valve replacement [Unknown]
  - Cardiogenic shock [Unknown]
  - Ischaemic cardiomyopathy [Unknown]
  - Ventricular tachycardia [Unknown]
  - Aortic dissection [Unknown]
  - Pleural effusion [Unknown]
  - Coronary artery disease [Unknown]
